FAERS Safety Report 11993353 (Version 1)
Quarter: 2016Q1

REPORT INFORMATION
  Report Type: Spontaneous
  Country: IT (occurrence: IT)
  Receive Date: 20160203
  Receipt Date: 20160203
  Transmission Date: 20160526
  Serious: Yes (Other)
  Sender: FDA-Public Use
  Company Number: IT-ACCORD-037351

PATIENT
  Age: 65 Year
  Sex: Male
  Weight: 69 kg

DRUGS (3)
  1. OXALIPLATIN. [Suspect]
     Active Substance: OXALIPLATIN
     Indication: ADENOCARCINOMA GASTRIC
     Dosage: RECEIVED FROM 30-NOV-2015 TO 28-DEC-2015.
     Route: 042
     Dates: start: 20151130
  2. FLUOROURACIL. [Suspect]
     Active Substance: FLUOROURACIL
     Indication: ADENOCARCINOMA GASTRIC
     Dosage: INITIALLY RECEIVED IV BOLUS AT THE DOSE OF 700 MG CYCLICAL FROM 30-NOV-2015 TO 28-DEC-2015.
     Route: 042
     Dates: start: 20151130
  3. LEDERFOLIN [Concomitant]
     Active Substance: LEUCOVORIN CALCIUM
     Indication: ADENOCARCINOMA GASTRIC
     Route: 042
     Dates: start: 20151130, end: 20151228

REACTIONS (3)
  - Neutropenia [Unknown]
  - Astringent therapy [Recovering/Resolving]
  - Hypertensive crisis [Recovering/Resolving]

NARRATIVE: CASE EVENT DATE: 20151201
